FAERS Safety Report 5027168-0 (Version None)
Quarter: 2006Q2

REPORT INFORMATION
  Report Type: 
  Country: None (occurrence: None)
  Receive Date: 20060501
  Receipt Date: 20060120
  Transmission Date: 20061013
  Serious: No
  Sender: FDA-Public Use
  Company Number: 2006PV007576

PATIENT
  Sex: Female

DRUGS (2)
  1. SYMLIN INJECTION (0.6 MG/ML) [Suspect]
     Indication: DIABETES MELLITUS INSULIN-DEPENDENT
     Dosage: SC
     Route: 058
  2. INSULIN PUMP [Concomitant]

REACTIONS (5)
  - HYPOGLYCAEMIA [None]
  - MEDICATION ERROR [None]
  - MENTAL IMPAIRMENT [None]
  - NAUSEA [None]
  - WRONG DRUG ADMINISTERED [None]
